FAERS Safety Report 5229496-2 (Version None)
Quarter: 2007Q1

REPORT INFORMATION
  Report Type: 
  Country: None (occurrence: None)
  Receive Date: 20070201
  Receipt Date: 20070124
  Transmission Date: 20070707
  Serious: Yes (Hospitalization)
  Sender: FDA-Public Use
  Company Number: 2006PV025923

PATIENT
  Age: 51 Year
  Sex: Female

DRUGS (7)
  1. SMYLIN INJECTION (0.6 MG/ML) [Suspect]
     Indication: DIABETES MELLITUS NON-INSULIN-DEPENDENT
     Dosage: 120 MCG; BID; SC; SEE IMAGE
     Route: 058
     Dates: start: 20060928, end: 20061001
  2. SMYLIN INJECTION (0.6 MG/ML) [Suspect]
     Indication: DIABETES MELLITUS NON-INSULIN-DEPENDENT
     Dosage: 120 MCG; BID; SC; SEE IMAGE
     Route: 058
     Dates: start: 20061001, end: 20061101
  3. SMYLIN INJECTION (0.6 MG/ML) [Suspect]
     Indication: DIABETES MELLITUS NON-INSULIN-DEPENDENT
     Dosage: 120 MCG; BID; SC; SEE IMAGE
     Route: 058
     Dates: start: 20061121, end: 20061125
  4. SMYLIN INJECTION (0.6 MG/ML) [Suspect]
     Indication: DIABETES MELLITUS NON-INSULIN-DEPENDENT
     Dosage: 120 MCG; BID; SC; SEE IMAGE
     Route: 058
     Dates: start: 20061126
  5. NOVOLOG [Concomitant]
  6. GLUCOPHAGE [Concomitant]
  7. GLYBURIDE [Concomitant]

REACTIONS (5)
  - ANXIETY [None]
  - ARTERIAL OCCLUSIVE DISEASE [None]
  - BLOOD GLUCOSE DECREASED [None]
  - BLOOD GLUCOSE INCREASED [None]
  - NAUSEA [None]
